FAERS Safety Report 25506423 (Version 1)
Quarter: 2025Q3

REPORT INFORMATION
  Report Type: Spontaneous
  Country: US (occurrence: US)
  Receive Date: 20250702
  Receipt Date: 20250702
  Transmission Date: 20251021
  Serious: No
  Sender: SANOFI AVENTIS
  Company Number: US-SANOFI-02574522

PATIENT
  Sex: Female

DRUGS (1)
  1. DUPIXENT [Suspect]
     Active Substance: DUPILUMAB
     Indication: Chronic rhinosinusitis with nasal polyps
     Dosage: 300 MG, QOW
     Dates: start: 20250407, end: 2025

REACTIONS (4)
  - Skin plaque [Unknown]
  - Eye pruritus [Unknown]
  - Pustule [Unknown]
  - Erythema [Unknown]

NARRATIVE: CASE EVENT DATE: 20250401
